FAERS Safety Report 5615918-1 (Version None)
Quarter: 2008Q1

REPORT INFORMATION
  Report Type: 
  Country: None (occurrence: None)
  Receive Date: 20080114
  Receipt Date: 20070626
  Transmission Date: 20080703
  Serious: Yes (Other)
  Sender: FDA-Public Use
  Company Number: A03200404014

PATIENT
  Age: 69 Year
  Sex: Male
  Weight: 96.6162 kg

DRUGS (5)
  1. PLAVIX [Suspect]
     Indication: ARTERIAL OCCLUSIVE DISEASE
     Dosage: 75 MG QD - ORAL
     Route: 048
     Dates: start: 20040801, end: 20040901
  2. PLAVIX [Suspect]
     Indication: STENT PLACEMENT
     Dosage: 75 MG QD - ORAL
     Route: 048
     Dates: start: 20040801, end: 20040901
  3. ASPIRIN [Suspect]
     Indication: ARTERIAL OCCLUSIVE DISEASE
     Dosage: 325 MG QD - ORAL
     Route: 048
     Dates: start: 20000101, end: 20040101
  4. ASPIRIN [Suspect]
     Indication: STENT PLACEMENT
     Dosage: 325 MG QD - ORAL
     Route: 048
     Dates: start: 20000101, end: 20040101
  5. METOPROLOL TARTRATE [Concomitant]

REACTIONS (10)
  - CONTUSION [None]
  - DIARRHOEA [None]
  - DYSPEPSIA [None]
  - EPISTAXIS [None]
  - GASTROINTESTINAL HAEMORRHAGE [None]
  - HAEMATEMESIS [None]
  - HAEMOPTYSIS [None]
  - MELAENA [None]
  - PAIN [None]
  - ULCER [None]
